FAERS Safety Report 7882901 (Version 3)
Quarter: 2014Q3

REPORT INFORMATION
  Report Type: Spontaneous
  Country: DE (occurrence: DE)
  Receive Date: 20110404
  Receipt Date: 20140729
  Transmission Date: 20150326
  Serious: Yes (Life-Threatening, Hospitalization)
  Sender: FDA-Public Use
  Company Number: DE-RANBAXY-2011RR-43218

PATIENT
  Age: 82 Year
  Sex: Male
  Weight: 90 kg

DRUGS (2)
  1. CIPROFLOXACIN. [Suspect]
     Active Substance: CIPROFLOXACIN
     Indication: SUBCUTANEOUS ABSCESS
     Dosage: UNK
     Route: 048
     Dates: start: 200710
  2. PHENPROCOUMON [Suspect]
     Active Substance: PHENPROCOUMON
     Indication: ATRIAL FIBRILLATION
     Dosage: UNK
     Route: 048

REACTIONS (6)
  - Spontaneous haematoma [Recovered/Resolved]
  - Groin pain [Recovered/Resolved]
  - Retroperitoneal haemorrhage [Recovered/Resolved]
  - Syncope [Recovered/Resolved]
  - Prothrombin level decreased [Recovered/Resolved]
  - Drug interaction [Recovered/Resolved]

NARRATIVE: CASE EVENT DATE: 20071022
